FAERS Safety Report 24674448 (Version 2)
Quarter: 2024Q4

REPORT INFORMATION
  Report Type: Spontaneous
  Country: US (occurrence: US)
  Receive Date: 20241128
  Receipt Date: 20241204
  Transmission Date: 20250115
  Serious: Yes (Life-Threatening, Hospitalization)
  Sender: MACLEODS
  Company Number: US-MACLEODS PHARMA-MAC2024050416

PATIENT

DRUGS (1)
  1. HYDROCHLOROTHIAZIDE\LOSARTAN [Suspect]
     Active Substance: HYDROCHLOROTHIAZIDE\LOSARTAN
     Indication: Hypertension
     Dosage: 50/12.5 MG FOR 7 MONTHS
     Route: 065

REACTIONS (6)
  - Non-cardiogenic pulmonary oedema [Recovered/Resolved]
  - Acute respiratory failure [Recovered/Resolved]
  - Procalcitonin increased [Recovered/Resolved]
  - Leukopenia [Recovered/Resolved]
  - Oral pain [Unknown]
  - Asthenia [Unknown]
